FAERS Safety Report 11664109 (Version 2)
Quarter: 2015Q4

REPORT INFORMATION
  Report Type: Spontaneous
  Country: US (occurrence: US)
  Receive Date: 20151027
  Receipt Date: 20151029
  Transmission Date: 20160304
  Serious: No
  Sender: FDA-Public Use
  Company Number: US-009507513-1510USA009850

PATIENT
  Age: 55 Year
  Sex: Male

DRUGS (1)
  1. BELSOMRA [Suspect]
     Active Substance: SUVOREXANT
     Indication: INSOMNIA
     Dosage: UNK UNK, HS
     Route: 048
     Dates: start: 20151017, end: 201510

REACTIONS (4)
  - Vertigo [Unknown]
  - Malaise [Unknown]
  - Migraine [Unknown]
  - Agitation [Unknown]

NARRATIVE: CASE EVENT DATE: 20151018
